FAERS Safety Report 8325365-X (Version None)
Quarter: 2012Q2

REPORT INFORMATION
  Report Type: 
  Country: None (occurrence: None)
  Receive Date: 20120501
  Receipt Date: 20100422
  Transmission Date: 20120825
  Serious: No
  Sender: FDA-Public Use
  Company Number: US-TEVA-2010002091

PATIENT
  Sex: Male

DRUGS (10)
  1. VALIUM [Concomitant]
  2. MIRALAX [Concomitant]
     Dates: start: 20091001
  3. ASPIRIN [Concomitant]
     Dates: start: 20030401
  4. LOVASTATIN [Concomitant]
     Dates: start: 20030601
  5. VERAPAMIL SA [Concomitant]
     Dates: start: 20030401
  6. VITAMIN TAB [Concomitant]
  7. NUVIGIL [Suspect]
     Indication: SOMNOLENCE
     Dosage: 250 MILLIGRAM;
     Route: 048
     Dates: start: 20100407, end: 20100409
  8. PENYOXIFYLINE [Concomitant]
  9. PLAVIX [Concomitant]
     Dates: start: 20030301
  10. RESTASIS [Concomitant]
     Dates: start: 20061001

REACTIONS (5)
  - DRUG INEFFECTIVE FOR UNAPPROVED INDICATION [None]
  - INTENTIONAL DRUG MISUSE [None]
  - ABDOMINAL DISCOMFORT [None]
  - INSOMNIA [None]
  - DRUG EFFECT INCREASED [None]
